FAERS Safety Report 5637644-5 (Version None)
Quarter: 2008Q1

REPORT INFORMATION
  Report Type: 
  Country: None (occurrence: None)
  Receive Date: 20080219
  Receipt Date: 20080204
  Transmission Date: 20080703
  Serious: Yes (Death)
  Sender: FDA-Public Use
  Company Number: 2008-01247

PATIENT
  Age: 20 Year
  Sex: Male

DRUGS (6)
  1. DIPYRIDAMOLE [Suspect]
  2. FIORINAL [Suspect]
  3. ZOLPIDEM TARTRATE [Suspect]
  4. UNKNOWN DRUG() [Suspect]
  5. MOEXIPRIL HCL [Suspect]
  6. ATORVASTATIN CALCIUM [Suspect]

REACTIONS (1)
  - CARDIO-RESPIRATORY ARREST [None]
